FAERS Safety Report 24702828 (Version 1)
Quarter: 2024Q4

REPORT INFORMATION
  Report Type: Spontaneous
  Country: CH (occurrence: CH)
  Receive Date: 20241205
  Receipt Date: 20241205
  Transmission Date: 20250115
  Serious: Yes (Hospitalization, Other)
  Sender: MYLAN
  Company Number: CH-MYLANLABS-2024M1109155

PATIENT
  Age: 75 Year
  Sex: Male

DRUGS (19)
  1. AMBISOME [Suspect]
     Active Substance: AMPHOTERICIN B
     Indication: Pulmonary mucormycosis
     Dosage: 200 MILLIGRAM, QD (6H INFUSION)
     Route: 042
  2. PANTOPRAZOLE [Interacting]
     Active Substance: PANTOPRAZOLE
     Indication: Prophylaxis against gastrointestinal ulcer
     Dosage: 20 MILLIGRAM, QD (1-0-0-0)
     Route: 065
  3. PREVYMIS [Interacting]
     Active Substance: LETERMOVIR
     Indication: Antiviral prophylaxis
     Dosage: 480 MILLIGRAM, QD ( 0-2-0-0)
     Route: 048
  4. CRESEMBA [Interacting]
     Active Substance: ISAVUCONAZONIUM SULFATE
     Indication: Pulmonary mucormycosis
     Dosage: 200 MILLIGRAM, QD
     Route: 048
     Dates: start: 20240725, end: 20240809
  5. CRESEMBA [Interacting]
     Active Substance: ISAVUCONAZONIUM SULFATE
     Dosage: 200 MILLIGRAM, QD
     Route: 048
     Dates: start: 20240823
  6. VALACYCLOVIR HYDROCHLORIDE [Interacting]
     Active Substance: VALACYCLOVIR HYDROCHLORIDE
     Indication: Antiviral prophylaxis
     Dosage: 500 MILLIGRAM, QD (1-0-0-0)
     Route: 048
  7. PROGRAF [Interacting]
     Active Substance: TACROLIMUS
     Indication: Prophylaxis against graft versus host disease
     Dosage: 1.5 MILLIGRAM, BID
     Route: 048
     Dates: start: 202407
  8. PROGRAF [Interacting]
     Active Substance: TACROLIMUS
     Dosage: UNK
     Route: 065
  9. SULFAMETHOXAZOLE\TRIMETHOPRIM [Interacting]
     Active Substance: SULFAMETHOXAZOLE\TRIMETHOPRIM
     Indication: Antifungal prophylaxis
     Dosage: 1 DOSAGE FORM, QOD, MO, MI, FR
     Route: 048
  10. CELLCEPT [Interacting]
     Active Substance: MYCOPHENOLATE MOFETIL
     Indication: Prophylaxis against graft versus host disease
     Dosage: 1000 MILLIGRAM, BID
     Route: 048
     Dates: end: 20240806
  11. CALCIUM CARBONATE\CHOLECALCIFEROL [Concomitant]
     Active Substance: CALCIUM CARBONATE\CHOLECALCIFEROL
     Dosage: UNK
     Route: 065
  12. ACETAMINOPHEN [Concomitant]
     Active Substance: ACETAMINOPHEN
     Dosage: UNK
     Route: 065
     Dates: end: 20240811
  13. MAGNESIUM ASPARTATE HYDROCHLORIDE [Concomitant]
     Active Substance: MAGNESIUM ASPARTATE HYDROCHLORIDE
     Dosage: UNK
     Route: 065
  14. FRAGMIN [Concomitant]
     Active Substance: DALTEPARIN SODIUM
     Dosage: UNK
     Route: 065
  15. FREKA-CLYSS [Concomitant]
     Dosage: UNK
     Route: 065
     Dates: end: 20240812
  16. CLEMASTINE FUMARATE [Concomitant]
     Active Substance: CLEMASTINE FUMARATE
     Dosage: UNK
     Route: 065
     Dates: end: 20240811
  17. CHOLECALCIFEROL [Concomitant]
     Active Substance: CHOLECALCIFEROL
     Dosage: UNK
     Route: 065
  18. Supradyn pro energy complex [Concomitant]
     Dosage: UNK
     Route: 065
  19. MAGNESIUM SULFATE [Concomitant]
     Active Substance: MAGNESIUM SULFATE
     Dosage: UNK
     Route: 065
     Dates: end: 20240810

REACTIONS (2)
  - Acute kidney injury [Recovering/Resolving]
  - Drug interaction [Recovering/Resolving]

NARRATIVE: CASE EVENT DATE: 20240701
